FAERS Safety Report 6404962-2 (Version None)
Quarter: 2009Q4

REPORT INFORMATION
  Report Type: 
  Country: None (occurrence: None)
  Receive Date: 20091019
  Receipt Date: 20091008
  Transmission Date: 20100525
  Serious: Yes (Other)
  Sender: FDA-Public Use
  Company Number: CA-JNJFOC-20091003712

PATIENT
  Sex: Male
  Weight: 89 kg

DRUGS (12)
  1. REMICADE [Suspect]
     Indication: CROHN'S DISEASE
     Route: 042
     Dates: start: 20040601
  2. PENTASA [Concomitant]
  3. IMURAN [Concomitant]
  4. VASERETIC [Concomitant]
     Dosage: 10/25 MG
  5. NASONEX [Concomitant]
  6. FERROUS SULFATE TAB [Concomitant]
  7. LOSEC [Concomitant]
  8. VITAMIN B-12 [Concomitant]
  9. VITAMIN D [Concomitant]
  10. CALCIUM [Concomitant]
     Dosage: WITH 400 IU OF VITAMIN D
  11. LUMIGAN [Concomitant]
  12. CENTRUM MULTIVITAMINS [Concomitant]

REACTIONS (1)
  - TREMOR [None]
